FAERS Safety Report 10240681 (Version 1)
Quarter: 2014Q1

REPORT INFORMATION
  Report Type: Spontaneous
  Country: US (occurrence: None)
  Receive Date: 20140306
  Receipt Date: 20140306
  Transmission Date: 20141002
  Serious: Yes (Hospitalization, Disabling)
  Sender: FDA-Public Use
  Company Number: 163-21880-13034831

PATIENT
  Age: 62 Year
  Sex: Male
  Weight: 77.57 kg

DRUGS (1)
  1. REVLIMID [Suspect]
     Indication: PLASMA CELL MYELOMA
     Route: 048
     Dates: start: 200905

REACTIONS (4)
  - Pneumonia [None]
  - Epistaxis [None]
  - Pancytopenia [None]
  - Disease progression [None]
